FAERS Safety Report 6594124-0 (Version None)
Quarter: 2010Q1

REPORT INFORMATION
  Report Type: 
  Country: None (occurrence: None)
  Receive Date: 20100222
  Receipt Date: 20100210
  Transmission Date: 20100710
  Serious: Yes (Other)
  Sender: FDA-Public Use
  Company Number: KR-PFIZER INC-2010017196

PATIENT

DRUGS (1)
  1. LYRICA [Suspect]
     Dosage: 150 MG, UNK
     Route: 048

REACTIONS (1)
  - CONVULSION [None]
